FAERS Safety Report 7083445-3 (Version None)
Quarter: 2010Q4

REPORT INFORMATION
  Report Type: 
  Country: None (occurrence: None)
  Receive Date: 20101104
  Receipt Date: 20101027
  Transmission Date: 20110411
  Serious: Yes (Hospitalization)
  Sender: FDA-Public Use
  Company Number: B0566699A

PATIENT
  Sex: Male

DRUGS (3)
  1. OMACOR [Suspect]
     Dosage: 1000MG PER DAY
     Route: 048
  2. ACE INHIBITORS [Concomitant]
  3. ASPIRIN [Concomitant]

REACTIONS (1)
  - RASH GENERALISED [None]
